FAERS Safety Report 10016370 (Version 1)
Quarter: 2014Q1

REPORT INFORMATION
  Report Type: Report from Study
  Country: US (occurrence: US)
  Receive Date: 20140317
  Receipt Date: 20140317
  Transmission Date: 20141002
  Serious: Yes (Hospitalization, Other)
  Sender: FDA-Public Use
  Company Number: US-ABBVIE-14P-163-1209861-00

PATIENT
  Age: 40 Year
  Sex: Female
  Weight: 47.22 kg

DRUGS (2)
  1. HUMIRA [Suspect]
     Indication: CROHN^S DISEASE
     Dosage: LOADING DOSE
     Dates: start: 20140219, end: 20140219
  2. VITAMIN B12 [Concomitant]
     Indication: VITAMIN B12 DEFICIENCY

REACTIONS (5)
  - Intestinal stenosis [Recovering/Resolving]
  - Nausea [Recovered/Resolved]
  - Retching [Recovered/Resolved]
  - Parosmia [Recovered/Resolved]
  - Fluid intake reduced [Recovered/Resolved]
